FAERS Safety Report 9358777 (Version 2)
Quarter: 2013Q3

REPORT INFORMATION
  Report Type: Spontaneous
  Country: FR (occurrence: FR)
  Receive Date: 20130620
  Receipt Date: 20130723
  Transmission Date: 20140515
  Serious: Yes (Hospitalization)
  Sender: FDA-Public Use
  Company Number: FR-JNJFOC-20130611691

PATIENT
  Age: 33 Year
  Sex: Male

DRUGS (17)
  1. IXPRIM [Suspect]
     Indication: ARTHRALGIA
     Route: 048
  2. RIFADINE [Suspect]
     Indication: ARTHRITIS BACTERIAL
     Route: 048
     Dates: start: 20130203, end: 20130211
  3. ORBENINE [Suspect]
     Indication: ARTHRITIS BACTERIAL
     Route: 041
     Dates: start: 20130202, end: 20130218
  4. RIFADINE [Suspect]
     Indication: ARTHRITIS BACTERIAL
     Route: 042
     Dates: start: 20130202, end: 20130203
  5. RIFADINE [Suspect]
     Indication: ARTHRITIS BACTERIAL
     Route: 042
     Dates: start: 20130131, end: 20130202
  6. GENTAMICIN SULFATE [Concomitant]
     Indication: ARTHRITIS BACTERIAL
     Route: 041
     Dates: start: 20130202, end: 20130205
  7. CONTRAMAL [Concomitant]
     Indication: PRODUCT USED FOR UNKNOWN INDICATION
     Route: 048
     Dates: start: 20130308
  8. TAVANIC [Concomitant]
     Indication: ARTHRITIS BACTERIAL
     Route: 048
     Dates: start: 20130218, end: 20130308
  9. STERCULIA URENS GUM [Concomitant]
     Indication: PRODUCT USED FOR UNKNOWN INDICATION
     Route: 054
     Dates: start: 20130203, end: 20130308
  10. MOVICOL [Concomitant]
     Indication: PRODUCT USED FOR UNKNOWN INDICATION
     Route: 048
     Dates: start: 20130203, end: 20130308
  11. ACUPAN [Concomitant]
     Indication: ARTHRITIS BACTERIAL
     Route: 041
     Dates: start: 20130131, end: 20130308
  12. EXTRANASE [Concomitant]
     Indication: PRODUCT USED FOR UNKNOWN INDICATION
     Route: 048
     Dates: start: 20130308
  13. CLINDAMYCIN HYDROCHLORIDE [Concomitant]
     Indication: ARTHRITIS BACTERIAL
     Route: 041
     Dates: start: 20130211, end: 20130218
  14. CIPROFLOXACIN [Concomitant]
     Indication: PRODUCT USED FOR UNKNOWN INDICATION
     Route: 065
     Dates: start: 20130201, end: 20130202
  15. CLINDAMYCIN PHOSPHATE [Concomitant]
     Indication: PRODUCT USED FOR UNKNOWN INDICATION
     Route: 048
     Dates: start: 20130308
  16. CLINDAMYCIN PHOSPHATE [Concomitant]
     Indication: PRODUCT USED FOR UNKNOWN INDICATION
     Route: 048
     Dates: start: 20130218, end: 20130308
  17. LEVOFLOXACIN [Concomitant]
     Indication: PRODUCT USED FOR UNKNOWN INDICATION
     Route: 048
     Dates: start: 20130308

REACTIONS (1)
  - Hepatocellular injury [Recovered/Resolved]
